FAERS Safety Report 11419910 (Version 2)
Quarter: 2016Q4

REPORT INFORMATION
  Report Type: Report from Study
  Country: DE (occurrence: DE)
  Receive Date: 20150826
  Receipt Date: 20161028
  Transmission Date: 20170206
  Serious: Yes (Other)
  Sender: FDA-Public Use
  Company Number: DE-TEVA-586883GER

PATIENT
  Age: 35 Year
  Sex: Female
  Weight: 79 kg

DRUGS (4)
  1. MYOCET [Suspect]
     Active Substance: DOXORUBICIN
     Indication: BREAST CANCER FEMALE
     Dosage: LAST DOSE PRIOR TO SAE: 05-AUG-2015
     Route: 042
     Dates: start: 20150511, end: 20150812
  2. CARBOPLATIN. [Suspect]
     Active Substance: CARBOPLATIN
     Indication: BREAST CANCER FEMALE
     Dosage: LAST DOSE PRIOR TO SAE: 05-AUG-2015
     Route: 042
     Dates: start: 20150511, end: 20150812
  3. PACLITAXEL. [Suspect]
     Active Substance: PACLITAXEL
     Indication: BREAST CANCER FEMALE
     Dosage: LAST DOSE PRIOR TO SAE: 05-AUG-2015
     Route: 042
     Dates: start: 20150511, end: 20150812
  4. IBUPROFEN. [Concomitant]
     Active Substance: IBUPROFEN
     Dosage: DRUG STILL BEING ADMINISTERED
     Dates: start: 20150811, end: 2015

REACTIONS (1)
  - Palmar-plantar erythrodysaesthesia syndrome [Recovered/Resolved]

NARRATIVE: CASE EVENT DATE: 20150811
